FAERS Safety Report 4889311-3 (Version None)
Quarter: 2006Q1

REPORT INFORMATION
  Report Type: 
  Country: None (occurrence: None)
  Receive Date: 20060124
  Receipt Date: 20051209
  Transmission Date: 20060701
  Serious: Yes (Death)
  Sender: FDA-Public Use
  Company Number: US-BRISTOL-MYERS SQUIBB COMPANY-13211271

PATIENT
  Age: 75 Year
  Sex: Female

DRUGS (2)
  1. PRAVACHOL [Suspect]
     Indication: HYPERCHOLESTEROLAEMIA
     Route: 048
  2. PLAVIX [Suspect]
     Indication: CEREBROVASCULAR DISORDER
     Route: 048

REACTIONS (1)
  - DEATH [None]
